FAERS Safety Report 13776059 (Version 2)
Quarter: 2017Q3

REPORT INFORMATION
  Report Type: Report from Study
  Country: US (occurrence: IN)
  Receive Date: 20170721
  Receipt Date: 20170802
  Transmission Date: 20171127
  Serious: Yes (Death, Hospitalization)
  Sender: FDA-Public Use
  Company Number: US-SUNOVION-2017SUN003143

PATIENT
  Age: 87 Year
  Sex: Male
  Weight: 52 kg

DRUGS (9)
  1. CLOPIDOGREL [Concomitant]
     Active Substance: CLOPIDOGREL BISULFATE
     Dosage: UNK
     Dates: start: 20170702
  2. ACETYLCYSTEINE. [Concomitant]
     Active Substance: ACETYLCYSTEINE
     Dosage: 600 MG, TID
     Dates: start: 20170625
  3. INDACATEROL AND GLYCOPYRROLATE [Suspect]
     Active Substance: GLYCOPYRROLATE\INDACATEROL MALEATE
     Indication: CHRONIC OBSTRUCTIVE PULMONARY DISEASE
     Dosage: INDACATEROL 110 UG GLYCOPYRRONIUM BROMIDE 50 UG, QD
     Route: 055
     Dates: start: 20161205, end: 20170625
  4. POTASSIUM CHLORIDE. [Concomitant]
     Active Substance: POTASSIUM CHLORIDE
     Dosage: UNK
     Dates: start: 20170701
  5. CILNIDIPINE [Concomitant]
     Active Substance: CILNIDIPINE
     Dosage: UNK
     Dates: start: 20140101, end: 20170709
  6. EPLERENONE. [Concomitant]
     Active Substance: EPLERENONE
     Dosage: UNK
     Dates: start: 20170625, end: 20170708
  7. ACETYLSALICYLIC ACID W/ATORVASTATIN [Concomitant]
     Indication: CORONARY ARTERY DISEASE
     Dosage: 75 MG, QD
     Dates: start: 20170625, end: 20170708
  8. NICORANDIL [Concomitant]
     Active Substance: NICORANDIL
     Dosage: UNK
     Dates: start: 20170702
  9. HEPARIN [Concomitant]
     Active Substance: HEPARIN SODIUM
     Dosage: UNK
     Dates: start: 20170702

REACTIONS (7)
  - Respiratory failure [Fatal]
  - Orthopnoea [Unknown]
  - Gastrooesophageal reflux disease [Unknown]
  - Acute kidney injury [Fatal]
  - Dyspnoea [Unknown]
  - Chronic obstructive pulmonary disease [Fatal]
  - Hyperuricaemia [Unknown]

NARRATIVE: CASE EVENT DATE: 20170625
